FAERS Safety Report 4810873-6 (Version None)
Quarter: 2005Q4

REPORT INFORMATION
  Report Type: 
  Country: None (occurrence: None)
  Receive Date: 20051025
  Receipt Date: 20051025
  Transmission Date: 20060501
  Serious: Yes (Death)
  Sender: FDA-Public Use
  Company Number: None

PATIENT
  Sex: Male
  Weight: 80.1 kg

DRUGS (3)
  1. FLUDARABINE [Suspect]
     Indication: STEM CELL TRANSPLANT
     Dosage: 48MG DAILY IV DRIP
     Route: 042
     Dates: start: 20050721, end: 20050725
  2. BUSULFAN [Suspect]
     Dosage: 727 MG DAILY IV DRIP
     Route: 041
     Dates: start: 20050725, end: 20050725
  3. CAMPATH [Concomitant]

REACTIONS (8)
  - ALANINE AMINOTRANSFERASE INCREASED [None]
  - ASCITES [None]
  - ASPARTATE AMINOTRANSFERASE INCREASED [None]
  - BLOOD BILIRUBIN INCREASED [None]
  - HEPATOSPLENOMEGALY [None]
  - PANCYTOPENIA [None]
  - VENOOCCLUSIVE DISEASE [None]
  - WEIGHT INCREASED [None]
